FAERS Safety Report 8935000 (Version 1)
Quarter: 2012Q4

REPORT INFORMATION
  Report Type: 
  Country: US (occurrence: US)
  Receive Date: 20121129
  Receipt Date: 20121129
  Transmission Date: 20130627
  Serious: No
  Sender: FDA-Public Use
  Company Number: US-B.I. PHARMACEUTICALS,INC./RIDGEFIELD-2012-BI-00564BP

PATIENT
  Age: 95 None
  Sex: Male

DRUGS (5)
  1. AGGRENOX [Suspect]
     Indication: CEREBROVASCULAR ACCIDENT PROPHYLAXIS
     Route: 042
     Dates: start: 201201
  2. LISINOPRIL [Concomitant]
     Indication: HYPERTENSION
     Dosage: 20 mg
     Route: 048
     Dates: start: 201203
  3. CLONAZEPAM [Concomitant]
     Indication: INSOMNIA
     Dosage: 1 mg
     Route: 048
     Dates: start: 2007
  4. ATENOLOL [Concomitant]
     Indication: HYPERTENSION
     Dosage: 50 mg
     Route: 048
     Dates: start: 1978
  5. OMEPRAZOLE [Concomitant]
     Indication: GASTROOESOPHAGEAL REFLUX DISEASE
     Dosage: 40 mg
     Route: 048
     Dates: start: 201112

REACTIONS (3)
  - Dysphagia [Not Recovered/Not Resolved]
  - Cough [Not Recovered/Not Resolved]
  - Abnormal loss of weight [Not Recovered/Not Resolved]
